FAERS Safety Report 21214677 (Version 2)
Quarter: 2023Q4

REPORT INFORMATION
  Report Type: Spontaneous
  Country: US (occurrence: US)
  Receive Date: 20220816
  Receipt Date: 20231222
  Transmission Date: 20240110
  Serious: Yes (Other)
  Sender: FDA-Public Use
  Company Number: US-BRISTOL-MYERS SQUIBB COMPANY-2022-090402

PATIENT
  Age: 58 Year
  Sex: Female

DRUGS (2)
  1. POMALYST [Suspect]
     Active Substance: POMALIDOMIDE
     Indication: Plasma cell myeloma
     Dosage: 4 MILLIGRAM DAILY FOR 21 DAYS ON AND 7 DAYS OFF
     Route: 048
     Dates: start: 202206
  2. POMALYST [Suspect]
     Active Substance: POMALIDOMIDE
     Dosage: ONCE DAILY FOR 21 DAYS ON AND 7 DAYS OFF
     Route: 048
     Dates: start: 202206, end: 202312

REACTIONS (4)
  - Diarrhoea [Recovering/Resolving]
  - Nausea [Unknown]
  - Muscle spasms [Recovering/Resolving]
  - Respiratory arrest [Recovering/Resolving]
